FAERS Safety Report 8340795-8 (Version None)
Quarter: 2012Q2

REPORT INFORMATION
  Report Type: 
  Country: None (occurrence: None)
  Receive Date: 20120507
  Receipt Date: 20120502
  Transmission Date: 20120825
  Serious: No
  Sender: FDA-Public Use
  Company Number: US-BIOGENIDEC-2012BI015377

PATIENT
  Sex: Female

DRUGS (1)
  1. AVONEX [Suspect]
     Indication: MULTIPLE SCLEROSIS
     Route: 030
     Dates: start: 20030124

REACTIONS (4)
  - CHEST DISCOMFORT [None]
  - INJECTION SITE HAEMORRHAGE [None]
  - ANXIETY [None]
  - INFLUENZA LIKE ILLNESS [None]
